FAERS Safety Report 16325035 (Version 1)
Quarter: 2019Q2

REPORT INFORMATION
  Report Type: Spontaneous
  Country: US (occurrence: US)
  Receive Date: 20190517
  Receipt Date: 20190517
  Transmission Date: 20190711
  Serious: Yes (Other)
  Sender: FDA-Public Use
  Company Number: US-ACTELION-A-CH2019-190240

PATIENT
  Age: 14 Month
  Sex: Female

DRUGS (1)
  1. BOSENTAN. [Suspect]
     Active Substance: BOSENTAN
     Indication: PULMONARY HYPERTENSION
     Route: 048

REACTIONS (6)
  - Pyrexia [Recovered/Resolved]
  - Microwave therapy [Unknown]
  - Alpha 1 foetoprotein increased [Recovering/Resolving]
  - Hepatoblastoma [Unknown]
  - Ileus [Recovered/Resolved]
  - Biopsy [Unknown]
